FAERS Safety Report 8365145-2 (Version None)
Quarter: 2012Q2

REPORT INFORMATION
  Report Type: 
  Country: None (occurrence: None)
  Receive Date: 20120516
  Receipt Date: 20120508
  Transmission Date: 20120825
  Serious: Yes (Other)
  Sender: FDA-Public Use
  Company Number: US-ASTRAZENECA-2012SE29854

PATIENT
  Age: 53 Year
  Sex: Female

DRUGS (1)
  1. SEROQUEL XR [Suspect]
     Route: 048

REACTIONS (5)
  - DEMENTIA [None]
  - THINKING ABNORMAL [None]
  - ATTENTION DEFICIT/HYPERACTIVITY DISORDER [None]
  - CEREBRAL HAEMORRHAGE [None]
  - INSOMNIA [None]
